FAERS Safety Report 5126635-9 (Version None)
Quarter: 2006Q4

REPORT INFORMATION
  Report Type: 
  Country: None (occurrence: None)
  Receive Date: 20061010
  Receipt Date: 20060927
  Transmission Date: 20070319
  Serious: Yes (Other)
  Sender: FDA-Public Use
  Company Number: 2006097118

PATIENT
  Age: 73 Year
  Sex: Female
  Weight: 70 kg

DRUGS (4)
  1. AROMASIN [Suspect]
     Indication: BREAST CANCER
     Dosage: 25 MG (25 MG, 1 IN 1 D), ORAL
     Route: 048
     Dates: start: 20050715, end: 20060701
  2. CALCIUM (CALCIUM) [Concomitant]
  3. MAGNESIUM (MAGNESIUM) [Concomitant]
  4. ZINC (ZINC) [Concomitant]

REACTIONS (7)
  - BALANCE DISORDER [None]
  - HYPOAESTHESIA [None]
  - HYPOREFLEXIA [None]
  - NERVE INJURY [None]
  - PARAESTHESIA [None]
  - PRURITUS [None]
  - TREMOR [None]
